FAERS Safety Report 9929392 (Version 1)
Quarter: 2014Q1

REPORT INFORMATION
  Report Type: Report from Study
  Country: BR (occurrence: BR)
  Receive Date: 20140227
  Receipt Date: 20140227
  Transmission Date: 20141002
  Serious: Yes (Other)
  Sender: FDA-Public Use
  Company Number: BR-BAYER-2014-030502

PATIENT
  Sex: Female

DRUGS (2)
  1. BETAFERON [Suspect]
     Indication: MULTIPLE SCLEROSIS
     Dosage: 1 ML, QOD
     Route: 058
     Dates: end: 201402
  2. OMEPRAZOLE [Concomitant]
     Indication: GASTRITIS
     Dosage: 1 DF, BID
     Route: 048
     Dates: start: 1999

REACTIONS (5)
  - Multiple sclerosis relapse [Recovering/Resolving]
  - Muscular weakness [Recovering/Resolving]
  - Ligament sprain [Recovering/Resolving]
  - Balance disorder [Recovering/Resolving]
  - Nausea [Recovering/Resolving]
